FAERS Safety Report 10440821 (Version 1)
Quarter: 2014Q3

REPORT INFORMATION
  Report Type: Spontaneous
  Country: US (occurrence: US)
  Receive Date: 20140909
  Receipt Date: 20140909
  Transmission Date: 20150326
  Serious: Yes (Other)
  Sender: FDA-Public Use
  Company Number: US-AMGEN-USASP2014067471

PATIENT
  Age: 83 Year
  Sex: Male

DRUGS (1)
  1. NPLATE [Suspect]
     Active Substance: ROMIPLOSTIM
     Indication: MYELODYSPLASTIC SYNDROME
     Dosage: UNK
     Route: 065
     Dates: start: 20140902

REACTIONS (9)
  - Myalgia [Unknown]
  - Asthenopia [Unknown]
  - Pain in extremity [Unknown]
  - Dyspepsia [Unknown]
  - Paraesthesia [Unknown]
  - Platelet count abnormal [Unknown]
  - Abdominal pain [Unknown]
  - Insomnia [Unknown]
  - Musculoskeletal pain [Unknown]
